FAERS Safety Report 4731741-4 (Version None)
Quarter: 2005Q3

REPORT INFORMATION
  Report Type: 
  Country: None (occurrence: None)
  Receive Date: 20050725
  Receipt Date: 20040902
  Transmission Date: 20060218
  Serious: Yes (Disabling)
  Sender: FDA-Public Use
  Company Number: WAES 0306USA00629

PATIENT
  Age: 37 Year
  Sex: Female

DRUGS (4)
  1. VIOXX [Suspect]
     Dosage: PO
     Route: 048
  2. BUSPAR [Concomitant]
  3. CELEBREX [Concomitant]
  4. PROPRANOLOL HYDROCHLORIDE [Concomitant]

REACTIONS (4)
  - ADVERSE EVENT [None]
  - LIBIDO DECREASED [None]
  - RENAL FUNCTION TEST ABNORMAL [None]
  - URINARY TRACT INFECTION [None]
